FAERS Safety Report 9724253 (Version 1)
Quarter: 2013Q4

REPORT INFORMATION
  Report Type: Spontaneous
  Country: US (occurrence: US)
  Receive Date: 20131202
  Receipt Date: 20131202
  Transmission Date: 20140711
  Serious: No
  Sender: FDA-Public Use
  Company Number: US-AMGEN-USASP2013080012

PATIENT
  Age: 40 Year
  Sex: Female

DRUGS (1)
  1. ENBREL [Suspect]
     Indication: JUVENILE IDIOPATHIC ARTHRITIS
     Dosage: 25 MG, EVERY 3.5 DAYS
     Route: 065
     Dates: start: 2000, end: 200402

REACTIONS (2)
  - Condition aggravated [Unknown]
  - Juvenile idiopathic arthritis [Not Recovered/Not Resolved]
